FAERS Safety Report 9091898 (Version 2)
Quarter: 2013Q3

REPORT INFORMATION
  Report Type: Report from Study
  Country: US (occurrence: US)
  Receive Date: 20130201
  Receipt Date: 20130812
  Transmission Date: 20140515
  Serious: Yes (Hospitalization)
  Sender: FDA-Public Use
  Company Number: US-ABBOTT-12P-163-1019007-00

PATIENT
  Age: 55 Year
  Sex: Female
  Weight: 120.31 kg

DRUGS (16)
  1. HUMIRA [Suspect]
     Indication: RHEUMATOID ARTHRITIS
     Dates: end: 2009
  2. HUMIRA [Suspect]
     Indication: CROHN^S DISEASE
     Dates: start: 2009
  3. LANTUS [Concomitant]
     Indication: DIABETES MELLITUS
  4. HUMALOG [Concomitant]
     Indication: DIABETES MELLITUS
  5. WELLBUTRIN [Concomitant]
     Indication: DEPRESSION
  6. AMITRIPTYLINE [Concomitant]
     Indication: PAIN
  7. AMBIEN [Concomitant]
     Indication: INSOMNIA
  8. ASPIRIN [Concomitant]
     Indication: PRODUCT USED FOR UNKNOWN INDICATION
  9. CALCIUM [Concomitant]
     Indication: PRODUCT USED FOR UNKNOWN INDICATION
  10. VITAMIN D [Concomitant]
     Indication: VITAMIN SUPPLEMENTATION
  11. UNKNOWN VITAMIN [Concomitant]
     Indication: DIABETES MELLITUS
  12. UNKNOWN VITAMIN [Concomitant]
     Indication: VITAMIN SUPPLEMENTATION
  13. FIBER GUMMIES [Concomitant]
     Indication: PRODUCT USED FOR UNKNOWN INDICATION
  14. MS CONTIN [Concomitant]
     Indication: PAIN
  15. IBUPROFEN [Concomitant]
     Indication: PRODUCT USED FOR UNKNOWN INDICATION
  16. UNKNOWN RESPIRATORY MEDICATION [Concomitant]
     Indication: PRODUCT USED FOR UNKNOWN INDICATION
     Dosage: TWO BREATHING TREATMENTS

REACTIONS (23)
  - Ileus [Not Recovered/Not Resolved]
  - Intestinal obstruction [Not Recovered/Not Resolved]
  - Drug ineffective [Unknown]
  - Chronic obstructive pulmonary disease [Not Recovered/Not Resolved]
  - Sleep apnoea syndrome [Not Recovered/Not Resolved]
  - Rhinorrhoea [Recovering/Resolving]
  - Pain [Recovering/Resolving]
  - Dyspnoea [Recovering/Resolving]
  - Oropharyngeal pain [Recovering/Resolving]
  - Chills [Recovering/Resolving]
  - Cough [Recovering/Resolving]
  - Productive cough [Recovering/Resolving]
  - Dyspnoea [Recovering/Resolving]
  - Ear pain [Recovering/Resolving]
  - Oropharyngeal pain [Recovering/Resolving]
  - Aphonia [Recovering/Resolving]
  - Skin discolouration [Recovering/Resolving]
  - Pyrexia [Recovering/Resolving]
  - Pain [Recovered/Resolved]
  - Mobility decreased [Recovered/Resolved]
  - Malaise [Recovered/Resolved]
  - Anxiety [Not Recovered/Not Resolved]
  - Nausea [Not Recovered/Not Resolved]
